FAERS Safety Report 17800479 (Version 1)
Quarter: 2020Q2

REPORT INFORMATION
  Report Type: Spontaneous
  Country: CA (occurrence: CA)
  Receive Date: 20200519
  Receipt Date: 20200519
  Transmission Date: 20200714
  Serious: Yes (Hospitalization, Other)
  Sender: FDA-Public Use
  Company Number: CA-AMGEN-CANSP2020077703

PATIENT
  Age: 25 Year
  Sex: Female

DRUGS (1)
  1. DARBEPOETIN ALFA [Suspect]
     Active Substance: DARBEPOETIN ALFA
     Indication: ANAEMIA
     Dosage: UNK
     Route: 065

REACTIONS (9)
  - Maternal exposure during pregnancy [Unknown]
  - Immunosuppression [Unknown]
  - Uterine atony [Recovering/Resolving]
  - Chest discomfort [Unknown]
  - Disease progression [Unknown]
  - Platelet count decreased [Unknown]
  - Caesarean section [Unknown]
  - Premature delivery [Unknown]
  - Off label use [Unknown]
